FAERS Safety Report 6859693-1 (Version None)
Quarter: 2010Q3

REPORT INFORMATION
  Report Type: 
  Country: None (occurrence: None)
  Receive Date: 20100720
  Receipt Date: 20100712
  Transmission Date: 20110219
  Serious: Yes (Hospitalization)
  Sender: FDA-Public Use
  Company Number: CA-BIOGENIDEC-2010BI016564

PATIENT
  Age: 36 Year
  Sex: Female

DRUGS (2)
  1. TYSABRI [Suspect]
     Indication: MULTIPLE SCLEROSIS
     Route: 042
     Dates: start: 20080717
  2. TYSABRI [Suspect]
     Route: 042
     Dates: start: 20080717

REACTIONS (4)
  - DEPRESSION [None]
  - MENTAL STATUS CHANGES [None]
  - SUICIDAL IDEATION [None]
  - URINARY INCONTINENCE [None]
